FAERS Safety Report 5318233-9 (Version None)
Quarter: 2007Q2

REPORT INFORMATION
  Report Type: 
  Country: None (occurrence: None)
  Receive Date: 20070507
  Receipt Date: 20070427
  Transmission Date: 20071010
  Serious: Yes (Congenital Anomaly)
  Sender: FDA-Public Use
  Company Number: DK-ABBOTT-06P-044-0350013-00

PATIENT
  Age: 1 Day
  Sex: Female

DRUGS (1)
  1. DEPAKENE [Suspect]
     Indication: DRUG EXPOSURE DURING PREGNANCY
     Route: 065

REACTIONS (7)
  - CONGENITAL NEUROLOGICAL DISORDER [None]
  - DEVELOPMENTAL DELAY [None]
  - FOETAL ANTICONVULSANT SYNDROME [None]
  - LEARNING DISORDER [None]
  - MOTOR DYSFUNCTION [None]
  - SPEECH DISORDER DEVELOPMENTAL [None]
  - UNEVALUABLE EVENT [None]
